FAERS Safety Report 23356091 (Version 2)
Quarter: 2024Q1

REPORT INFORMATION
  Report Type: Report from Study
  Country: CO (occurrence: CO)
  Receive Date: 20240102
  Receipt Date: 20240119
  Transmission Date: 20240409
  Serious: Yes (Death)
  Sender: FDA-Public Use
  Company Number: CO-BAYER-2023A186667

PATIENT
  Sex: Male

DRUGS (1)
  1. EYLEA [Suspect]
     Active Substance: AFLIBERCEPT
     Indication: Product used for unknown indication
     Dosage: 2 MG INTRAVITREALLY, MONTHLY FOR 5 MONTHS, AND THEN EVERY 2 MONTHS, SOLUTION FOR INJECTION, 40 MG/ML
     Route: 031
     Dates: start: 20220720

REACTIONS (1)
  - Death [Fatal]
